FAERS Safety Report 26175335 (Version 1)
Quarter: 2025Q4

REPORT INFORMATION
  Report Type: Spontaneous
  Country: CA (occurrence: CA)
  Receive Date: 20251218
  Receipt Date: 20251218
  Transmission Date: 20260118
  Serious: Yes (Other)
  Sender: IPSEN BIOPHARMACEUTICALS, INC.
  Company Number: CA-MLMSERVICE-20230823-4497347-1

PATIENT
  Age: 8 Month
  Sex: Male

DRUGS (4)
  1. IRINOTECAN [Suspect]
     Active Substance: IRINOTECAN
     Indication: Embryonal rhabdomyosarcoma
  2. VINCRISTINE [Suspect]
     Active Substance: VINCRISTINE
     Indication: Embryonal rhabdomyosarcoma
  3. CYCLOPHOSPHAMIDE [Concomitant]
     Active Substance: CYCLOPHOSPHAMIDE
     Indication: Embryonal rhabdomyosarcoma
     Route: 048
  4. DACTINOMYCIN [Concomitant]
     Active Substance: DACTINOMYCIN
     Indication: Embryonal rhabdomyosarcoma

REACTIONS (1)
  - Gastrointestinal toxicity [Unknown]
